FAERS Safety Report 25631960 (Version 1)
Quarter: 2025Q3

REPORT INFORMATION
  Report Type: Spontaneous
  Country: US (occurrence: US)
  Receive Date: 20250801
  Receipt Date: 20250801
  Transmission Date: 20251021
  Serious: Yes (Hospitalization)
  Sender: MYLAN
  Company Number: US-MYLANLABS-2025M1063329

PATIENT
  Age: 82 Year
  Sex: Male

DRUGS (4)
  1. DAPTOMYCIN [Suspect]
     Active Substance: DAPTOMYCIN
     Indication: Osteomyelitis
     Dosage: 675 MILLIGRAM, QD
  2. DAPTOMYCIN [Suspect]
     Active Substance: DAPTOMYCIN
     Dosage: 675 MILLIGRAM, QD
     Route: 042
  3. DAPTOMYCIN [Suspect]
     Active Substance: DAPTOMYCIN
     Dosage: 675 MILLIGRAM, QD
     Route: 042
  4. DAPTOMYCIN [Suspect]
     Active Substance: DAPTOMYCIN
     Dosage: 675 MILLIGRAM, QD

REACTIONS (4)
  - Pneumonitis [Recovering/Resolving]
  - Eosinophilic pneumonia acute [Recovering/Resolving]
  - Respiratory distress [Recovering/Resolving]
  - Acute respiratory failure [Recovering/Resolving]
